FAERS Safety Report 18917742 (Version 1)
Quarter: 2021Q1

REPORT INFORMATION
  Report Type: Spontaneous
  Country: US (occurrence: US)
  Receive Date: 20210219
  Receipt Date: 20210219
  Transmission Date: 20210420
  Serious: No
  Sender: FDA-Public Use
  Company Number: US-PFIZER INC-2021143234

PATIENT
  Age: 66 Year
  Sex: Male
  Weight: 107.95 kg

DRUGS (3)
  1. NITROGLYCERIN. [Suspect]
     Active Substance: NITROGLYCERIN
     Indication: CHEST PAIN
     Dosage: 2 DF
     Route: 060
     Dates: start: 20210209, end: 20210209
  2. NITROGLYCERIN. [Suspect]
     Active Substance: NITROGLYCERIN
     Dosage: 3 DF
     Route: 060
     Dates: start: 20210209, end: 20210209
  3. NITROGLYCERIN. [Suspect]
     Active Substance: NITROGLYCERIN
     Dosage: 1 DF
     Route: 060
     Dates: start: 20210209, end: 20210209

REACTIONS (6)
  - Pain in extremity [Unknown]
  - Intentional product use issue [Unknown]
  - Feeling abnormal [Unknown]
  - Poor quality product administered [Unknown]
  - Product storage error [Unknown]
  - Myalgia [Unknown]

NARRATIVE: CASE EVENT DATE: 20210209
